FAERS Safety Report 11494562 (Version 2)
Quarter: 2015Q3

REPORT INFORMATION
  Report Type: Spontaneous
  Country: AR (occurrence: AR)
  Receive Date: 20150911
  Receipt Date: 20150925
  Transmission Date: 20151125
  Serious: Yes (Other)
  Sender: FDA-Public Use
  Company Number: PHHY2015AR109790

PATIENT
  Age: 71 Year
  Sex: Female

DRUGS (1)
  1. TEGRETOL [Suspect]
     Active Substance: CARBAMAZEPINE
     Indication: PRODUCT USED FOR UNKNOWN INDICATION
     Dosage: 400 MG, QD
     Route: 065

REACTIONS (6)
  - Loss of consciousness [Recovered/Resolved]
  - Fall [Recovered/Resolved]
  - Confusional state [Unknown]
  - Petit mal epilepsy [Unknown]
  - VIIth nerve paralysis [Recovered/Resolved]
  - Speech disorder [Unknown]
